FAERS Safety Report 18416039 (Version 2)
Quarter: 2020Q4

REPORT INFORMATION
  Report Type: Report from Study
  Country: US (occurrence: US)
  Receive Date: 20201022
  Receipt Date: 20201028
  Transmission Date: 20210114
  Serious: Yes (Life-Threatening, Hospitalization, Other)
  Sender: FDA-Public Use
  Company Number: US-GILEAD-2018-0354760

PATIENT
  Age: 78 Year
  Sex: Male
  Weight: 71.9 kg

DRUGS (51)
  1. CYCLOPHOSPHAMIDE. [Suspect]
     Active Substance: CYCLOPHOSPHAMIDE
     Indication: BONE MARROW CONDITIONING REGIMEN
     Dosage: 1800 MG, ONCE
     Route: 042
     Dates: start: 20180729, end: 20180729
  2. DIFLUCAN [Concomitant]
     Active Substance: FLUCONAZOLE
  3. PRILOSEC [Concomitant]
     Active Substance: OMEPRAZOLE MAGNESIUM
  4. MICAFUNGIN. [Concomitant]
     Active Substance: MICAFUNGIN SODIUM
  5. PANTOPRAZOLE [Concomitant]
     Active Substance: PANTOPRAZOLE
  6. FENTANYL. [Concomitant]
     Active Substance: FENTANYL
     Dosage: 100
     Route: 042
  7. PRECEDEX [Concomitant]
     Active Substance: DEXMEDETOMIDINE HYDROCHLORIDE
     Indication: SEDATION
     Dosage: 0.5
     Route: 042
  8. FLUDARABINE [Suspect]
     Active Substance: FLUDARABINE PHOSPHATE
     Indication: BONE MARROW CONDITIONING REGIMEN
     Dosage: 50 MG, QD
     Route: 042
     Dates: start: 20180727, end: 20180729
  9. LIPITOR [Concomitant]
     Active Substance: ATORVASTATIN CALCIUM
  10. NEURONTIN [Concomitant]
     Active Substance: GABAPENTIN
  11. SPIRIVA [Concomitant]
     Active Substance: TIOTROPIUM BROMIDE MONOHYDRATE
  12. KEPPRA [Concomitant]
     Active Substance: LEVETIRACETAM
     Indication: PROPHYLAXIS
  13. TIOTROPIUM [Concomitant]
     Active Substance: TIOTROPIUM
  14. HEPARIN [Concomitant]
     Active Substance: HEPARIN SODIUM
  15. MIDAZOLAM. [Concomitant]
     Active Substance: MIDAZOLAM
  16. SODIUM CHLORIDE. [Concomitant]
     Active Substance: SODIUM CHLORIDE
     Route: 042
  17. G-CSF [Concomitant]
     Active Substance: GRANULOCYTE COLONY-STIMULATING FACTOR NOS
     Dosage: UNK
     Dates: start: 201807
  18. CYANOCOBALAMIN. [Concomitant]
     Active Substance: CYANOCOBALAMIN
  19. CEFEPIME [Concomitant]
     Active Substance: CEFEPIME HYDROCHLORIDE
  20. LORAZEPAM. [Concomitant]
     Active Substance: LORAZEPAM
  21. PROCHLORPERAZINE. [Concomitant]
     Active Substance: PROCHLORPERAZINE
  22. KEFLEX [Concomitant]
     Active Substance: CEPHALEXIN
  23. DEXTROSE. [Concomitant]
     Active Substance: DEXTROSE
     Route: 042
  24. ZYLOPRIM [Concomitant]
     Active Substance: ALLOPURINOL
  25. LEVAQUIN [Concomitant]
     Active Substance: LEVOFLOXACIN
  26. INSULIN LISPRO [Concomitant]
     Active Substance: INSULIN LISPRO
  27. FILGRASTIM [Concomitant]
     Active Substance: FILGRASTIM
     Dosage: UNK
     Dates: start: 20180718, end: 20180719
  28. DENTA 5000 PLUS [Concomitant]
     Active Substance: SODIUM FLUORIDE
  29. CALCIUM CARBONATE AND VITAMIN D [Concomitant]
     Active Substance: CALCIUM CARBONATE\VITAMIN D
  30. POTASSIUM PHOSPHATES [Concomitant]
     Active Substance: POTASSIUM PHOSPHATE, DIBASIC\POTASSIUM PHOSPHATE, MONOBASIC
  31. INFLUENZA VACCINE [Concomitant]
     Active Substance: INFLUENZA VIRUS VACCINE
  32. MAGNESIUM SULFATE. [Concomitant]
     Active Substance: MAGNESIUM SULFATE
  33. GLUCOSE [Concomitant]
     Active Substance: DEXTROSE
  34. IPRATROPIUM BROMIDE AND ALBUTEROL SULFATE [Concomitant]
     Active Substance: ALBUTEROL SULFATE\IPRATROPIUM BROMIDE
  35. NOREPINEPHRINE. [Concomitant]
     Active Substance: NOREPINEPHRINE
     Dosage: 0.2
     Route: 042
  36. FOSAMAX [Concomitant]
     Active Substance: ALENDRONATE SODIUM
  37. NEOMYCIN AND POLYMYXIN B SULFATES, BACITRACIN [Concomitant]
     Active Substance: BACITRACIN\NEOMYCIN\POLYMYXIN B SULFATE
  38. ACETAMINOPHEN. [Concomitant]
     Active Substance: ACETAMINOPHEN
     Dosage: UNK
     Dates: start: 20180911
  39. DOXYCYCLINE. [Concomitant]
     Active Substance: DOXYCYCLINE
  40. POSACONAZOLE [Concomitant]
     Active Substance: POSACONAZOLE
  41. FAMOTIDINE. [Concomitant]
     Active Substance: FAMOTIDINE
  42. MORPHINE SULFATE. [Concomitant]
     Active Substance: MORPHINE SULFATE
  43. FLUDARABINE [Suspect]
     Active Substance: FLUDARABINE PHOSPHATE
     Dosage: UNK
     Route: 042
     Dates: start: 20180718, end: 20180719
  44. EPINEPHRINE. [Concomitant]
     Active Substance: EPINEPHRINE
     Route: 042
  45. KTE-X19 [Suspect]
     Active Substance: AXICABTAGENE CILOLEUCEL
     Indication: ACUTE LYMPHOCYTIC LEUKAEMIA
     Dosage: 1 X 10^6 TCR TRAN TCELLS/KG, 68 ML
     Route: 042
     Dates: start: 20180731, end: 20180731
  46. CYTARABINE. [Concomitant]
     Active Substance: CYTARABINE
     Dosage: UNK
     Dates: start: 20180718, end: 20180719
  47. VALTREX [Concomitant]
     Active Substance: VALACYCLOVIR HYDROCHLORIDE
  48. POTASSIUM CHLORIDE. [Concomitant]
     Active Substance: POTASSIUM CHLORIDE
  49. SYLVANT [Concomitant]
     Active Substance: SILTUXIMAB
  50. MEROPENEM. [Concomitant]
     Active Substance: MEROPENEM
  51. ONDANSETRON [Concomitant]
     Active Substance: ONDANSETRON

REACTIONS (10)
  - Cytokine release syndrome [Recovered/Resolved]
  - Aphasia [Recovered/Resolved]
  - Ileus [Recovered/Resolved]
  - Hypotension [Recovered/Resolved]
  - Disorientation [Recovered/Resolved]
  - Pyrexia [Recovered/Resolved]
  - Restlessness [Recovered/Resolved]
  - Sepsis [Recovered/Resolved with Sequelae]
  - Hypoxia [Recovered/Resolved]
  - Hypotension [Recovered/Resolved]

NARRATIVE: CASE EVENT DATE: 20180801
